FAERS Safety Report 9918331 (Version 7)
Quarter: 2014Q3

REPORT INFORMATION
  Report Type: Report from Study
  Country: US (occurrence: US)
  Receive Date: 20140224
  Receipt Date: 20140730
  Transmission Date: 20150326
  Serious: Yes (Hospitalization, Other)
  Sender: FDA-Public Use
  Company Number: US-BIOGENIDEC-2014BI016484

PATIENT
  Age: 37 Year
  Sex: Female

DRUGS (2)
  1. TYSABRI [Suspect]
     Active Substance: NATALIZUMAB
     Indication: MULTIPLE SCLEROSIS
     Route: 042
     Dates: start: 20140207
  2. TYSABRI [Suspect]
     Active Substance: NATALIZUMAB
     Indication: MULTIPLE SCLEROSIS
     Route: 042
     Dates: start: 20090209, end: 20130723

REACTIONS (13)
  - Immunodeficiency [Unknown]
  - Wound sepsis [Recovered/Resolved]
  - No therapeutic response [Not Recovered/Not Resolved]
  - Wound [Unknown]
  - Sepsis [Unknown]
  - Skin ulcer [Not Recovered/Not Resolved]
  - Unresponsive to stimuli [Recovered/Resolved]
  - Infection [Unknown]
  - Septic shock [Recovered/Resolved]
  - Urinary tract infection [Not Recovered/Not Resolved]
  - Aphasia [Not Recovered/Not Resolved]
  - Decubitus ulcer [Not Recovered/Not Resolved]
  - Pneumonia [Unknown]

NARRATIVE: CASE EVENT DATE: 2012
